FAERS Safety Report 4744775-0 (Version None)
Quarter: 2005Q3

REPORT INFORMATION
  Report Type: 
  Country: None (occurrence: None)
  Receive Date: 20050812
  Receipt Date: 20050812
  Transmission Date: 20060218
  Serious: Yes (Hospitalization, Other)
  Sender: FDA-Public Use
  Company Number: None

PATIENT
  Sex: Female
  Weight: 64.4 kg

DRUGS (4)
  1. FLUOROURACIL [Suspect]
     Indication: OESOPHAGEAL SQUAMOUS CELL CARCINOMA
     Dosage: SEE IMAGE
     Route: 065
     Dates: start: 20040723, end: 20040727
  2. CISPLATIN [Suspect]
     Dosage: SEE IMAGE
     Route: 065
     Dates: start: 20040723, end: 20040724
  3. PACLITAXEL [Suspect]
     Dosage: SEE IMAGE
     Route: 065
     Dates: start: 20040723, end: 20040724
  4. G-CSF [Suspect]
     Dosage: SEE IMAGE
     Route: 065
     Dates: start: 20040728, end: 20040728

REACTIONS (5)
  - BLOOD CULTURE POSITIVE [None]
  - DIARRHOEA [None]
  - INFECTION [None]
  - NAUSEA [None]
  - VOMITING [None]
